FAERS Safety Report 14207521 (Version 1)
Quarter: 2017Q4

REPORT INFORMATION
  Report Type: Spontaneous
  Country: US (occurrence: None)
  Receive Date: 20171120
  Receipt Date: 20171120
  Transmission Date: 20180321
  Serious: Yes (Hospitalization)
  Sender: FDA-Public Use
  Company Number: None

PATIENT
  Age: 70 Year
  Sex: Male

DRUGS (13)
  1. FA [Concomitant]
  2. COREG [Concomitant]
     Active Substance: CARVEDILOL
  3. NEXIUM [Concomitant]
     Active Substance: ESOMEPRAZOLE MAGNESIUM
  4. PLAVIX [Concomitant]
     Active Substance: CLOPIDOGREL BISULFATE
  5. ASA [Concomitant]
     Active Substance: ASPIRIN
  6. CRANBERRY. [Concomitant]
     Active Substance: CRANBERRY
  7. COQ10 [Concomitant]
     Active Substance: UBIDECARENONE
  8. LIPITOR [Concomitant]
     Active Substance: ATORVASTATIN CALCIUM
  9. ZETIA [Concomitant]
     Active Substance: EZETIMIBE
  10. ISOSORBIDE. [Concomitant]
     Active Substance: ISOSORBIDE
  11. HYDRALAZINE [Concomitant]
     Active Substance: HYDRALAZINE HYDROCHLORIDE
  12. LASIX [Concomitant]
     Active Substance: FUROSEMIDE
  13. SPRYCEL [Suspect]
     Active Substance: DASATINIB
     Indication: CHRONIC LYMPHOCYTIC LEUKAEMIA
     Dosage: ?          QUANTITY:1 TABLET;?
     Route: 048
     Dates: start: 20171019, end: 20171109

REACTIONS (1)
  - Pulmonary oedema [None]

NARRATIVE: CASE EVENT DATE: 20170911
